FAERS Safety Report 8492849-3 (Version None)
Quarter: 2012Q3

REPORT INFORMATION
  Report Type: 
  Country: None (occurrence: None)
  Receive Date: 20120706
  Receipt Date: 20120627
  Transmission Date: 20120928
  Serious: Yes (Death, Hospitalization, Other)
  Sender: FDA-Public Use
  Company Number: US-BRISTOL-MYERS SQUIBB COMPANY-16618365

PATIENT
  Age: 70 Year
  Sex: Female
  Weight: 58 kg

DRUGS (2)
  1. YERVOY [Suspect]
     Indication: MALIGNANT MELANOMA
     Dosage: LAST DOSE ON 11MAY12,NO OF COURSES: 4
     Route: 042
     Dates: start: 20120309, end: 20120511
  2. CALCIUM CARBONATE [Concomitant]

REACTIONS (6)
  - PERITONITIS [None]
  - DISSEMINATED INTRAVASCULAR COAGULATION [None]
  - LARGE INTESTINE PERFORATION [None]
  - COLITIS [None]
  - DIARRHOEA [None]
  - DEEP VEIN THROMBOSIS [None]
